FAERS Safety Report 10706224 (Version 1)
Quarter: 2015Q1

REPORT INFORMATION
  Report Type: Spontaneous
  Country: GB (occurrence: GB)
  Receive Date: 20150113
  Receipt Date: 20150113
  Transmission Date: 20150721
  Serious: Yes (Hospitalization)
  Sender: FDA-Public Use
  Company Number: GB-BRISTOL-MYERS SQUIBB COMPANY-BMS-2014-007056

PATIENT
  Age: 91 Year

DRUGS (9)
  1. ASPIRIN                            /00002701/ [Concomitant]
     Active Substance: ASPIRIN
  2. OMEPRAZOLE. [Concomitant]
     Active Substance: OMEPRAZOLE
  3. BENDROFLUMETHIAZIDE [Suspect]
     Active Substance: BENDROFLUMETHIAZIDE
     Indication: PRODUCT USED FOR UNKNOWN INDICATION
     Route: 065
  4. LOSARTAN [Suspect]
     Active Substance: LOSARTAN
     Indication: PRODUCT USED FOR UNKNOWN INDICATION
     Dosage: AT NIGHT
     Route: 065
  5. ATENOLOL. [Concomitant]
     Active Substance: ATENOLOL
  6. CALCICHEW D3 [Concomitant]
     Active Substance: CALCIUM\CHOLECALCIFEROL
  7. QUININE [Concomitant]
     Active Substance: QUININE
     Dosage: AT NIGHT
  8. PRAVASTATIN SODIUM. [Suspect]
     Active Substance: PRAVASTATIN SODIUM
     Indication: PRODUCT USED FOR UNKNOWN INDICATION
     Dosage: AT NIGHT
     Route: 065
  9. LACTULOSE. [Concomitant]
     Active Substance: LACTULOSE
     Dosage: 10MLS TWICE A DAY WHEN REQUIRED

REACTIONS (4)
  - Hypotension [Unknown]
  - Blood creatine phosphokinase increased [Recovering/Resolving]
  - Acute kidney injury [Unknown]
  - Rhabdomyolysis [Unknown]
